FAERS Safety Report 12591492 (Version 2)
Quarter: 2016Q3

REPORT INFORMATION
  Report Type: Spontaneous
  Country: US (occurrence: US)
  Receive Date: 20160726
  Receipt Date: 20160726
  Transmission Date: 20161109
  Serious: No
  Sender: FDA-Public Use
  Company Number: US-UNITED THERAPEUTICS-UNT-2016-000749

PATIENT
  Sex: Female

DRUGS (1)
  1. REMODULIN [Suspect]
     Active Substance: TREPROSTINIL
     Indication: PULMONARY ARTERIAL HYPERTENSION
     Dosage: 0.061 ?G/KG/MIN, CONTINUING
     Route: 041
     Dates: start: 201202

REACTIONS (6)
  - Euphoric mood [Unknown]
  - Cough [Unknown]
  - Palpitations [Unknown]
  - Hyperhidrosis [Unknown]
  - Tinnitus [Unknown]
  - Urticaria [Unknown]

NARRATIVE: CASE EVENT DATE: 20160114
